FAERS Safety Report 25751747 (Version 1)
Quarter: 2025Q3

REPORT INFORMATION
  Report Type: Report from Study
  Country: US (occurrence: US)
  Receive Date: 20250902
  Receipt Date: 20250902
  Transmission Date: 20251021
  Serious: Yes (Other)
  Sender: ABBVIE
  Company Number: US-ABBVIE-6439420

PATIENT
  Age: 61 Year
  Sex: Male

DRUGS (1)
  1. RINVOQ [Suspect]
     Active Substance: UPADACITINIB
     Indication: Dermatitis atopic
     Route: 048
     Dates: start: 20250509

REACTIONS (5)
  - Prostate cancer [Unknown]
  - Cardiac murmur [Unknown]
  - Dermatitis [Not Recovered/Not Resolved]
  - Cataract [Unknown]
  - Hypoacusis [Unknown]

NARRATIVE: CASE EVENT DATE: 20250101
